FAERS Safety Report 8090063-7 (Version None)
Quarter: 2012Q1

REPORT INFORMATION
  Report Type: 
  Country: None (occurrence: None)
  Receive Date: 20120129
  Receipt Date: 20111027
  Transmission Date: 20120608
  Serious: No
  Sender: FDA-Public Use
  Company Number: US-ABBOTT-11P-163-0869510-00

PATIENT
  Sex: Male
  Weight: 95.34 kg

DRUGS (3)
  1. HUMIRA [Suspect]
     Indication: RHEUMATOID ARTHRITIS
     Dates: start: 20111001
  2. FLONASE [Concomitant]
     Indication: ASTHMA
  3. UNKNOWN MEDICATIONS [Concomitant]
     Indication: ASTHMA

REACTIONS (4)
  - ARTHROPATHY [None]
  - LACERATION [None]
  - DYSPNOEA [None]
  - OEDEMA PERIPHERAL [None]
